FAERS Safety Report 4728767-3 (Version None)
Quarter: 2005Q3

REPORT INFORMATION
  Report Type: 
  Country: None (occurrence: None)
  Receive Date: 20050729
  Receipt Date: 20050722
  Transmission Date: 20060218
  Serious: Yes (Congenital Anomaly)
  Sender: FDA-Public Use
  Company Number: FR-GLAXOSMITHKLINE-B0388535B

PATIENT
  Sex: Female
  Weight: 1.9 kg

DRUGS (3)
  1. SERETIDE DISKUS [Suspect]
     Indication: ASTHMA
     Dosage: 1PUFF TWICE PER DAY
     Dates: start: 20040101
  2. BRONCHODUAL [Suspect]
     Indication: ASTHMA
     Dosage: 2TAB THREE TIMES PER DAY
     Dates: start: 20040101
  3. SINGULAIR [Suspect]
     Indication: ASTHMA
     Dosage: 1TAB AT NIGHT
     Dates: start: 20040101

REACTIONS (8)
  - ADACTYLY [None]
  - CONGENITAL ANOMALY [None]
  - DRUG EXPOSURE DURING PREGNANCY [None]
  - FINGER HYPOPLASIA [None]
  - FOETAL TOBACCO EXPOSURE [None]
  - LIMB REDUCTION DEFECT [None]
  - PREGNANCY [None]
  - PREGNANCY INDUCED HYPERTENSION [None]
